FAERS Safety Report 14140140 (Version 1)
Quarter: 2017Q4

REPORT INFORMATION
  Report Type: Spontaneous
  Country: US (occurrence: US)
  Receive Date: 20171030
  Receipt Date: 20171030
  Transmission Date: 20180321
  Serious: Yes (Other)
  Sender: FDA-Public Use
  Company Number: US-MACLEODS PHARMACEUTICALS US LTD-MAC2017006242

PATIENT

DRUGS (1)
  1. SILDENAFIL. [Suspect]
     Active Substance: SILDENAFIL
     Indication: GENITAL HERPES SIMPLEX
     Dosage: UNK
     Route: 065

REACTIONS (2)
  - Herpes simplex encephalitis [Unknown]
  - Off label use [Unknown]
